FAERS Safety Report 11108322 (Version 1)
Quarter: 2015Q2

REPORT INFORMATION
  Report Type: Spontaneous
  Country: US (occurrence: US)
  Receive Date: 20150512
  Receipt Date: 20150512
  Transmission Date: 20150821
  Serious: No
  Sender: FDA-Public Use
  Company Number: US-009507513-1505USA003800

PATIENT
  Age: 55 Year
  Sex: Female
  Weight: 172.3 kg

DRUGS (1)
  1. JANUVIA [Suspect]
     Active Substance: SITAGLIPTIN PHOSPHATE
     Indication: TYPE 2 DIABETES MELLITUS
     Dosage: 1 DF, QD
     Route: 048
     Dates: start: 20110801, end: 20120324

REACTIONS (5)
  - Muscular weakness [Unknown]
  - Pain in extremity [Recovered/Resolved]
  - Drug ineffective [Unknown]
  - Arthralgia [Recovered/Resolved]
  - Glycosylated haemoglobin increased [Unknown]

NARRATIVE: CASE EVENT DATE: 201109
